FAERS Safety Report 26001241 (Version 1)
Quarter: 2025Q4

REPORT INFORMATION
  Report Type: Spontaneous
  Country: US (occurrence: US)
  Receive Date: 20251105
  Receipt Date: 20251105
  Transmission Date: 20260117
  Serious: No
  Sender: ABBVIE
  Company Number: US-ABBVIE-6531990

PATIENT
  Age: 88 Year
  Sex: Female

DRUGS (1)
  1. CYCLOSPORINE [Suspect]
     Active Substance: CYCLOSPORINE
     Indication: Product used for unknown indication
     Route: 047

REACTIONS (5)
  - Illness [Unknown]
  - Vision blurred [Unknown]
  - Pain [Unknown]
  - Burning sensation [Unknown]
  - Heart rate abnormal [Unknown]
